FAERS Safety Report 18520452 (Version 1)
Quarter: 2020Q4

REPORT INFORMATION
  Report Type: Spontaneous
  Country: DK (occurrence: DK)
  Receive Date: 20201119
  Receipt Date: 20201119
  Transmission Date: 20210114
  Serious: Yes (Other)
  Sender: FDA-Public Use
  Company Number: DK-BRISTOL-MYERS SQUIBB COMPANY-BMS-2020-095939

PATIENT
  Sex: Male

DRUGS (2)
  1. ELIQUIS [Suspect]
     Active Substance: APIXABAN
     Indication: PRODUCT USED FOR UNKNOWN INDICATION
     Dosage: UNK
     Route: 065
  2. PENICILLIN NOS [Concomitant]
     Active Substance: PENICILLIN
     Indication: PNEUMONIA
     Dosage: UNK
     Route: 065

REACTIONS (7)
  - Tooth disorder [Unknown]
  - Blood pressure increased [Unknown]
  - Pulse abnormal [Unknown]
  - Wound haemorrhage [Unknown]
  - Hyperhidrosis [Unknown]
  - Pneumonia [Unknown]
  - Dizziness [Unknown]
